FAERS Safety Report 4267159-0 (Version None)
Quarter: 2004Q1

REPORT INFORMATION
  Report Type: 
  Country: None (occurrence: None)
  Receive Date: 20040107
  Receipt Date: 20031217
  Transmission Date: 20041129
  Serious: No
  Sender: FDA-Public Use
  Company Number: F04200300228

PATIENT
  Age: 76 Year
  Sex: Female

DRUGS (7)
  1. ARIXTRA-(FONDAPARINUX SODIUM) - SOLUTION - 2.5 MG [Suspect]
     Indication: SURGERY
     Dosage: 2.5 MG OD
     Route: 058
     Dates: start: 20031208, end: 20031216
  2. ARIXTRA-(FONDAPARINUX SODIUM) - SOLUTION - 2.5 MG [Suspect]
     Indication: THROMBOSIS PROPHYLAXIS
     Dosage: 2.5 MG OD
     Route: 058
     Dates: start: 20031208, end: 20031216
  3. VOLTAREN [Concomitant]
  4. OMEPRAZOL 20 (OMEPRAZOLE) [Concomitant]
  5. OXAZEPAM [Concomitant]
  6. TRISEQUENS (ESTRADIOL/NORETHISTERONE) [Concomitant]
  7. ATARAX [Concomitant]

REACTIONS (1)
  - HAEMATOCHEZIA [None]
